FAERS Safety Report 5680042-9 (Version None)
Quarter: 2008Q1

REPORT INFORMATION
  Report Type: 
  Country: None (occurrence: None)
  Receive Date: 20080325
  Receipt Date: 20080325
  Transmission Date: 20080703
  Serious: Yes (Other)
  Sender: FDA-Public Use
  Company Number: None

PATIENT
  Sex: Female
  Weight: 9.0719 kg

DRUGS (2)
  1. TAMIFLU [Suspect]
     Indication: INFLUENZA
     Dosage: 1 ML  ONCE DAILY  PO
     Route: 048
     Dates: start: 20080320, end: 20080320
  2. TAMIFLU [Suspect]
     Indication: PYREXIA
     Dosage: 1 ML  ONCE DAILY  PO
     Route: 048
     Dates: start: 20080320, end: 20080320

REACTIONS (4)
  - ANGER [None]
  - PANIC ATTACK [None]
  - RASH [None]
  - SLEEP TERROR [None]
